FAERS Safety Report 7438562-2 (Version None)
Quarter: 2011Q2

REPORT INFORMATION
  Report Type: 
  Country: None (occurrence: None)
  Receive Date: 20110426
  Receipt Date: 20110419
  Transmission Date: 20111010
  Serious: Yes (Other)
  Sender: FDA-Public Use
  Company Number: US-AMGEN-USASP2011015469

PATIENT
  Age: 89 Year
  Sex: Female

DRUGS (3)
  1. DILAUDID [Concomitant]
  2. PROLIA [Suspect]
     Indication: OSTEOPOROSIS POSTMENOPAUSAL
     Dosage: 60 MG, Q6MO
     Dates: start: 20110208
  3. CELEBREX [Concomitant]
     Dosage: UNK

REACTIONS (9)
  - POOR QUALITY SLEEP [None]
  - VENOUS INSUFFICIENCY [None]
  - INFECTION [None]
  - MYALGIA [None]
  - PRURITUS [None]
  - ARTHRALGIA [None]
  - BACK PAIN [None]
  - OEDEMA [None]
  - CELLULITIS [None]
